FAERS Safety Report 8552006-9 (Version None)
Quarter: 2012Q3

REPORT INFORMATION
  Report Type: 
  Country: None (occurrence: None)
  Receive Date: 20120730
  Receipt Date: 20120726
  Transmission Date: 20120928
  Serious: Yes (Death)
  Sender: FDA-Public Use
  Company Number: US-ROCHE-1092707

PATIENT
  Sex: Female

DRUGS (3)
  1. PEGASYS [Suspect]
     Indication: HEPATITIS C
     Route: 058
     Dates: start: 20110729, end: 20110928
  2. INCIVEK [Concomitant]
     Dates: start: 20110731
  3. COPEGUS [Concomitant]
     Dates: start: 20110731

REACTIONS (1)
  - UPPER GASTROINTESTINAL HAEMORRHAGE [None]
